FAERS Safety Report 18066670 (Version 1)
Quarter: 2020Q3

REPORT INFORMATION
  Report Type: Spontaneous
  Country: CN (occurrence: CN)
  Receive Date: 20200724
  Receipt Date: 20200724
  Transmission Date: 20201103
  Serious: Yes (Other)
  Sender: FDA-Public Use
  Company Number: CN-009507513-2007CHN007196

PATIENT
  Age: 58 Year
  Sex: Female
  Weight: 30 kg

DRUGS (3)
  1. TIENAM (IV) [Suspect]
     Active Substance: CILASTATIN SODIUM\IMIPENEM
     Indication: ANTI-INFECTIVE THERAPY
     Dosage: 0.5 GRAM, QID, IVGTT
     Route: 041
     Dates: start: 20200630, end: 20200711
  2. CIPROFLOXACIN HYDROCHLORIDE. [Suspect]
     Active Substance: CIPROFLOXACIN HYDROCHLORIDE
     Indication: ANTI-INFECTIVE THERAPY
     Dosage: 0.5 MILLIGRAM, TID
     Route: 048
     Dates: start: 20200709, end: 20200710
  3. SODIUM CHLORIDE. [Concomitant]
     Active Substance: SODIUM CHLORIDE
     Indication: MEDICATION DILUTION
     Dosage: 1100 MILLILITER
     Route: 041
     Dates: start: 20200630, end: 20200711

REACTIONS (2)
  - Status epilepticus [Recovering/Resolving]
  - Oxygen saturation decreased [Recovering/Resolving]

NARRATIVE: CASE EVENT DATE: 20200710
